FAERS Safety Report 10654848 (Version 1)
Quarter: 2014Q4

REPORT INFORMATION
  Report Type: Spontaneous
  Country: GB (occurrence: None)
  Receive Date: 20141212
  Receipt Date: 20141212
  Transmission Date: 20150529
  Serious: Yes (Other)
  Sender: FDA-Public Use
  Company Number: BD-2014-0144

PATIENT
  Age: 45 Year
  Sex: Female

DRUGS (5)
  1. FENTANYL. [Concomitant]
     Active Substance: FENTANYL
  2. ROCRONIUM (ROCRONIUM BROMIDE) [Concomitant]
  3. MORPHINE SULFATE. [Suspect]
     Active Substance: MORPHINE SULFATE
     Indication: ANAESTHESIA
  4. PROPOFOL. [Concomitant]
     Active Substance: PROPOFOL
  5. MIDAZOLAM [Suspect]
     Active Substance: MIDAZOLAM\MIDAZOLAM HYDROCHLORIDE
     Indication: ANAESTHESIA

REACTIONS (5)
  - Hypotension [None]
  - Swelling face [None]
  - Anaphylactic reaction [None]
  - Tachycardia [None]
  - Rash [None]
